FAERS Safety Report 10483486 (Version 2)
Quarter: 2014Q4

REPORT INFORMATION
  Report Type: Spontaneous
  Country: KR (occurrence: None)
  Receive Date: 20140926
  Receipt Date: 20141023
  Transmission Date: 20150528
  Serious: Yes (Other)
  Sender: FDA-Public Use
  Company Number: 2014-20391

PATIENT
  Age: 67 Year
  Sex: Male

DRUGS (1)
  1. EYLEA [Suspect]
     Active Substance: AFLIBERCEPT
     Indication: MACULAR DEGENERATION
     Route: 031
     Dates: start: 20140912

REACTIONS (2)
  - Endophthalmitis [None]
  - Suspected transmission of an infectious agent via product [None]

NARRATIVE: CASE EVENT DATE: 20140913
